FAERS Safety Report 22634201 (Version 2)
Quarter: 2023Q2

REPORT INFORMATION
  Report Type: Spontaneous
  Country: US (occurrence: US)
  Receive Date: 20230623
  Receipt Date: 20230630
  Transmission Date: 20230722
  Serious: No
  Sender: FDA-Public Use
  Company Number: US-ELI_LILLY_AND_COMPANY-US202306014102

PATIENT
  Sex: Female

DRUGS (2)
  1. MOUNJARO [Suspect]
     Active Substance: TIRZEPATIDE
     Indication: Diabetes mellitus
     Dosage: 2.5 MG, UNKNOWN
     Route: 065
     Dates: start: 20220926
  2. MOUNJARO [Suspect]
     Active Substance: TIRZEPATIDE
     Dosage: 10 MG, WEEKLY (1/W)
     Route: 065

REACTIONS (3)
  - Diarrhoea [Unknown]
  - Vomiting [Unknown]
  - Dehydration [Unknown]
